FAERS Safety Report 8490001-9 (Version None)
Quarter: 2012Q3

REPORT INFORMATION
  Report Type: 
  Country: None (occurrence: None)
  Receive Date: 20120705
  Receipt Date: 20120629
  Transmission Date: 20120928
  Serious: Yes (Hospitalization)
  Sender: FDA-Public Use
  Company Number: PHHY2012IN056526

PATIENT
  Age: 52 Year
  Sex: Female

DRUGS (10)
  1. ISONIAZID [Concomitant]
     Indication: PULMONARY TUBERCULOSIS
  2. ETHAMBUTOL HYDROCHLORIDE [Concomitant]
     Indication: PULMONARY TUBERCULOSIS
  3. AMLODIPINE [Concomitant]
     Dosage: 20 MG, UNK
  4. RIFAMPICIN [Suspect]
     Indication: PULMONARY TUBERCULOSIS
  5. AMLODIPINE [Concomitant]
     Dosage: 5 MG, QD
  6. AMLODIPINE [Concomitant]
     Dosage: 5 MG, UNK
  7. PYRAZINAMIDE [Concomitant]
     Indication: PULMONARY TUBERCULOSIS
  8. CYCLOPHOSPHAMIDE [Concomitant]
  9. NITROGLYCERIN [Concomitant]
     Route: 042
  10. STEROIDS NOS [Concomitant]

REACTIONS (1)
  - HYPERTENSION [None]
